FAERS Safety Report 6411026-0 (Version None)
Quarter: 2009Q4

REPORT INFORMATION
  Report Type: 
  Country: None (occurrence: None)
  Receive Date: 20091020
  Receipt Date: 20091020
  Transmission Date: 20100525
  Serious: No
  Sender: FDA-Public Use
  Company Number: None

PATIENT
  Age: 57 Year
  Sex: Female
  Weight: 64.4108 kg

DRUGS (1)
  1. JANUVIA [Suspect]
     Indication: TYPE 2 DIABETES MELLITUS
     Dosage: 100 MG 1 PILL AT NIGHT
     Dates: start: 20090921, end: 20091018

REACTIONS (4)
  - COUGH [None]
  - OROPHARYNGEAL PAIN [None]
  - RHINORRHOEA [None]
  - VERTIGO [None]
